FAERS Safety Report 10156741 (Version 1)
Quarter: 2014Q2

REPORT INFORMATION
  Report Type: Spontaneous
  Country: US (occurrence: None)
  Receive Date: 20140506
  Receipt Date: 20140506
  Transmission Date: 20141212
  Serious: Yes (Hospitalization)
  Sender: FDA-Public Use
  Company Number: None

PATIENT
  Age: 48 Year
  Sex: Female

DRUGS (10)
  1. TENOFOVIR [Suspect]
     Indication: HIV INFECTION
     Route: 048
     Dates: start: 20130313, end: 20130313
  2. EMTRICITABINE+TENOFOVIR [Concomitant]
  3. EMTRICITABINE [Concomitant]
  4. DARUNEVIR [Concomitant]
  5. DOCUSATO [Concomitant]
  6. DRANABINOL [Concomitant]
  7. HEPARIN [Concomitant]
  8. INSULIN [Concomitant]
  9. NICOTINE [Concomitant]
  10. TRAZODONE [Concomitant]

REACTIONS (6)
  - Weight decreased [None]
  - Hypophagia [None]
  - Hypotension [None]
  - Renal failure acute [None]
  - Fanconi syndrome [None]
  - Electrolyte imbalance [None]
